FAERS Safety Report 9531319 (Version 1)
Quarter: 2013Q3

REPORT INFORMATION
  Report Type: Spontaneous
  Country: IT (occurrence: None)
  Receive Date: 20130916
  Receipt Date: 20130916
  Transmission Date: 20140515
  Serious: Yes (Congenital Anomaly)
  Sender: FDA-Public Use
  Company Number: 2011AP002293

PATIENT
  Age: 31 Year
  Sex: Female

DRUGS (5)
  1. FERRIPROX [Suspect]
     Indication: THALASSAEMIA BETA
     Route: 048
     Dates: start: 200701, end: 20110928
  2. DESFERAL [Concomitant]
  3. CALCICOL [Concomitant]
  4. FOLIDEX [Concomitant]
  5. METOCAL [Concomitant]

REACTIONS (3)
  - Pregnancy [None]
  - Caesarean section [None]
  - Exposure during pregnancy [None]
